FAERS Safety Report 20394097 (Version 4)
Quarter: 2022Q2

REPORT INFORMATION
  Report Type: Report from Study
  Country: US (occurrence: US)
  Receive Date: 20220129
  Receipt Date: 20220525
  Transmission Date: 20220721
  Serious: Yes (Other)
  Sender: FDA-Public Use
  Company Number: US-NOVARTISPH-NVSC2022US017856

PATIENT
  Sex: Female

DRUGS (1)
  1. ENTRESTO [Suspect]
     Active Substance: SACUBITRIL\VALSARTAN
     Indication: Product used for unknown indication
     Dosage: 50 MG, UNKNOWN, (24/26 MG)
     Route: 065

REACTIONS (13)
  - Atrial fibrillation [Unknown]
  - Helplessness [Unknown]
  - Emotional disorder [Unknown]
  - Crying [Unknown]
  - Stress [Unknown]
  - Fear of disease [Unknown]
  - COVID-19 [Unknown]
  - Decreased appetite [Unknown]
  - Anxiety [Unknown]
  - Weight decreased [Recovered/Resolved with Sequelae]
  - Asthenia [Unknown]
  - Cough [Unknown]
  - Therapeutic product effect delayed [Unknown]
